FAERS Safety Report 10973184 (Version 4)
Quarter: 2015Q4

REPORT INFORMATION
  Report Type: Spontaneous
  Country: NO (occurrence: NO)
  Receive Date: 20150401
  Receipt Date: 20151110
  Transmission Date: 20160304
  Serious: Yes (Disabling)
  Sender: FDA-Public Use
  Company Number: NO-ROCHE-1557863

PATIENT
  Age: 17 Year
  Sex: Female

DRUGS (27)
  1. KEPPRA [Concomitant]
     Active Substance: LEVETIRACETAM
  2. ESOPRAL [Concomitant]
     Active Substance: ESOMEPRAZOLE MAGNESIUM
  3. CALCIGRAN FORTE [Concomitant]
  4. DIFLUCAN [Concomitant]
     Active Substance: FLUCONAZOLE
  5. KALEORID [Concomitant]
     Active Substance: POTASSIUM CHLORIDE
  6. PARACET (NORWAY) [Concomitant]
  7. MABTHERA [Suspect]
     Active Substance: RITUXIMAB
     Indication: HAEMOLYTIC ANAEMIA
     Route: 042
     Dates: start: 20110725
  8. ATGAM [Suspect]
     Active Substance: EQUINE THYMOCYTE IMMUNE GLOBULIN
     Indication: APLASTIC ANAEMIA
  9. PREDNISOLON [Concomitant]
     Active Substance: PREDNISOLONE
     Route: 065
     Dates: start: 20110802, end: 20120103
  10. LAMICTAL [Concomitant]
     Active Substance: LAMOTRIGINE
  11. STESOLID [Concomitant]
     Active Substance: DIAZEPAM
  12. NEXIUM [Concomitant]
     Active Substance: ESOMEPRAZOLE MAGNESIUM
  13. MERONEM [Concomitant]
     Active Substance: MEROPENEM
  14. HALDOL [Concomitant]
     Active Substance: HALOPERIDOL
  15. RIVOTRIL [Concomitant]
     Active Substance: CLONAZEPAM
  16. MABTHERA [Suspect]
     Active Substance: RITUXIMAB
     Indication: APLASTIC ANAEMIA
  17. CEFTRIAXONE. [Concomitant]
     Active Substance: CEFTRIAXONE
     Route: 065
  18. EPINAT [Concomitant]
  19. IMOVANE [Concomitant]
     Active Substance: ZOPICLONE
  20. AMPHOTERICIN [Concomitant]
     Active Substance: AMPHOTERICIN B
  21. ATGAM [Suspect]
     Active Substance: EQUINE THYMOCYTE IMMUNE GLOBULIN
     Indication: HAEMOLYTIC ANAEMIA
     Route: 065
     Dates: start: 20110729, end: 20110801
  22. AZITHROMYCIN [Concomitant]
     Active Substance: AZITHROMYCIN ANHYDROUS
  23. CIPROXIN [Concomitant]
     Active Substance: CIPROFLOXACIN
  24. POLARAMIN [Concomitant]
     Active Substance: DEXCHLORPHENIRAMINE MALEATE
  25. SANDIMMUN [Concomitant]
     Active Substance: CYCLOSPORINE
     Route: 065
     Dates: start: 20110802, end: 20120103
  26. ACICLOVIR [Concomitant]
     Active Substance: ACYCLOVIR
  27. PARALGIN FORTE (CODEINE PHOSPHATE/PARACETAMOL) [Concomitant]

REACTIONS (3)
  - Epilepsy [Not Recovered/Not Resolved]
  - Off label use [Unknown]
  - Visual field defect [Unknown]

NARRATIVE: CASE EVENT DATE: 20120304
